FAERS Safety Report 6287005-3 (Version None)
Quarter: 2009Q3

REPORT INFORMATION
  Report Type: 
  Country: None (occurrence: None)
  Receive Date: 20090728
  Receipt Date: 20090714
  Transmission Date: 20100115
  Serious: Yes (Life-Threatening, Other)
  Sender: FDA-Public Use
  Company Number: GB-MYLANLABS-2009S1012541

PATIENT
  Age: 54 Year
  Sex: Male

DRUGS (9)
  1. METFORMIN [Suspect]
     Indication: DIABETES MELLITUS
     Route: 048
  2. SIMVASTATIN [Suspect]
     Indication: BLOOD CHOLESTEROL INCREASED
     Route: 048
  3. ACETAMINOPHEN W/ CODEINE [Suspect]
     Indication: ANALGESIA
     Route: 048
  4. HUMIRA [Suspect]
     Indication: PSORIATIC ARTHROPATHY
     Route: 058
     Dates: start: 20070213, end: 20080930
  5. LAMISIL [Suspect]
     Indication: FUNGAL INFECTION
     Route: 048
  6. SILDENAFIL CITRATE [Suspect]
     Indication: ERECTILE DYSFUNCTION
  7. ASPIRIN [Concomitant]
     Indication: DRUG USE FOR UNKNOWN INDICATION
  8. METHOTREXATE [Concomitant]
     Indication: PSORIATIC ARTHROPATHY
     Dates: start: 20040101, end: 20070101
  9. SULFASALAZINE [Concomitant]
     Indication: PSORIATIC ARTHROPATHY
     Dates: start: 19980801, end: 20070610

REACTIONS (6)
  - EPSTEIN-BARR VIRUS ANTIBODY POSITIVE [None]
  - HODGKIN'S DISEASE [None]
  - ONYCHOMYCOSIS [None]
  - PYREXIA [None]
  - TOOTH ABSCESS [None]
  - WEIGHT INCREASED [None]
